FAERS Safety Report 9909567 (Version 1)
Quarter: 2014Q1

REPORT INFORMATION
  Report Type: Report from Study
  Country: CZ (occurrence: CZ)
  Receive Date: 20140219
  Receipt Date: 20140219
  Transmission Date: 20141002
  Serious: Yes (Hospitalization)
  Sender: FDA-Public Use
  Company Number: CZ-PFIZER INC-2014045798

PATIENT
  Sex: Male

DRUGS (1)
  1. SUTENT [Suspect]
     Indication: RENAL CELL CARCINOMA
     Dosage: 37.5 MG, 1X/DAY 4 WEEKS ON/2WEEKS OFF
     Route: 048
     Dates: start: 20130213

REACTIONS (3)
  - Embolism [Recovered/Resolved]
  - Dyspnoea [Unknown]
  - Burning sensation [Unknown]
